FAERS Safety Report 14425786 (Version 3)
Quarter: 2018Q2

REPORT INFORMATION
  Report Type: Spontaneous
  Country: DK (occurrence: DK)
  Receive Date: 20180123
  Receipt Date: 20180405
  Transmission Date: 20180711
  Serious: Yes (Other)
  Sender: FDA-Public Use
  Company Number: PHHY2017DK182852

PATIENT
  Age: 27 Year
  Sex: Female

DRUGS (13)
  1. PREDNISOLONE. [Concomitant]
     Active Substance: PREDNISOLONE
     Indication: EYE SWELLING
     Dosage: 5 MG, QD
     Route: 065
  2. DAPSONE. [Concomitant]
     Active Substance: DAPSONE
     Indication: ARTHRALGIA
     Dosage: 100 MG, QD
     Route: 065
  3. DAPSONE. [Concomitant]
     Active Substance: DAPSONE
     Indication: INFLUENZA LIKE ILLNESS
  4. FEXOFENADINE HYDROCHLORIDE. [Concomitant]
     Active Substance: FEXOFENADINE HYDROCHLORIDE
     Indication: URTICARIA
     Dosage: 720 MG, UNK
     Route: 065
  5. OMALIZUMAB. [Suspect]
     Active Substance: OMALIZUMAB
     Indication: ASTHMA
     Dosage: 300 MG, EVERY SECOND WEEK
     Route: 065
  6. FEXOFENADINE [Concomitant]
     Active Substance: FEXOFENADINE\FEXOFENADINE HYDROCHLORIDE
     Indication: PERIPHERAL SWELLING
  7. OMALIZUMAB. [Suspect]
     Active Substance: OMALIZUMAB
     Indication: URTICARIA
     Dosage: 300 MG
     Route: 065
  8. MONTELUKAST SODIUM. [Suspect]
     Active Substance: MONTELUKAST SODIUM
     Indication: ANTIALLERGIC THERAPY
     Dosage: 10 MG
     Route: 065
  9. PREDNISOLONE. [Concomitant]
     Active Substance: PREDNISOLONE
     Indication: PERIPHERAL SWELLING
  10. OMALIZUMAB. [Suspect]
     Active Substance: OMALIZUMAB
     Dosage: 300 MG, EVERY FOURTH WEEKUNK
     Route: 065
  11. PREDNISOLONE. [Concomitant]
     Active Substance: PREDNISOLONE
     Indication: URTICARIA
     Dosage: 50 MG, QD
     Route: 065
  12. FEXOFENADINE [Concomitant]
     Active Substance: FEXOFENADINE\FEXOFENADINE HYDROCHLORIDE
     Indication: EYE SWELLING
     Dosage: 180 MG, QID
     Route: 065
  13. FEXOFENADINE [Concomitant]
     Active Substance: FEXOFENADINE\FEXOFENADINE HYDROCHLORIDE
     Indication: URTICARIA

REACTIONS (2)
  - Drug ineffective [Unknown]
  - Alopecia [Recovered/Resolved]
